FAERS Safety Report 7236009-2 (Version None)
Quarter: 2011Q1

REPORT INFORMATION
  Report Type: 
  Country: None (occurrence: None)
  Receive Date: 20110120
  Receipt Date: 20101209
  Transmission Date: 20110831
  Serious: Yes (Death, Hospitalization)
  Sender: FDA-Public Use
  Company Number: JP-JNJFOC-20101204442

PATIENT
  Sex: Female
  Weight: 55 kg

DRUGS (43)
  1. ALOSENN [Concomitant]
     Indication: CONSTIPATION
     Route: 048
  2. COLAC [Concomitant]
     Indication: CONSTIPATION
     Route: 048
  3. INFLUENZA HA VACCINE [Concomitant]
     Indication: PROPHYLAXIS
     Route: 065
  4. DOXORUBICIN HCL [Suspect]
     Indication: OVARIAN CANCER RECURRENT
     Dosage: CYCLE 1
     Route: 042
  5. DOXORUBICIN HCL [Suspect]
     Dosage: CYCLE 3
     Route: 042
  6. DOXORUBICIN HCL [Suspect]
     Dosage: CYCLE 6
     Route: 042
  7. GRANISETRON HYDROCHLORIDE [Concomitant]
     Route: 041
  8. GRAN [Concomitant]
     Indication: NEUTROPHIL COUNT DECREASED
     Route: 058
  9. MAGMITT [Concomitant]
     Indication: CONSTIPATION
     Route: 048
  10. DOXORUBICIN HCL [Suspect]
     Dosage: CYCLE 5
     Route: 042
  11. TAKEPRON [Concomitant]
     Indication: PRODUCT USED FOR UNKNOWN INDICATION
     Route: 048
  12. PYDOXAL [Concomitant]
     Indication: PROPHYLAXIS
     Route: 048
  13. NERIPROCT [Concomitant]
     Indication: PRODUCT USED FOR UNKNOWN INDICATION
     Route: 061
  14. RENIVACE [Concomitant]
     Indication: HYPERTENSION
     Route: 048
  15. GRANISETRON HYDROCHLORIDE [Concomitant]
     Indication: PROPHYLAXIS
     Route: 041
  16. GRANISETRON HYDROCHLORIDE [Concomitant]
     Route: 041
  17. DOXORUBICIN HCL [Suspect]
     Dosage: CYCLE 2
     Route: 042
  18. DOXORUBICIN HCL [Suspect]
     Dosage: CYCLE 4
     Route: 042
  19. GRANISETRON HYDROCHLORIDE [Concomitant]
     Route: 041
  20. DEXART [Concomitant]
     Route: 042
  21. HIRUDOID CREAM [Concomitant]
     Indication: PALMAR-PLANTAR ERYTHRODYSAESTHESIA SYNDROME
     Route: 061
  22. PACETCOOL [Concomitant]
     Indication: PROPHYLAXIS
     Route: 042
  23. UNKNOWN MEDICATION [Concomitant]
     Indication: PRODUCT USED FOR UNKNOWN INDICATION
     Route: 065
  24. GRANISETRON HYDROCHLORIDE [Concomitant]
     Route: 041
  25. DEXART [Concomitant]
     Route: 042
  26. CRAVIT [Concomitant]
     Indication: DEVICE RELATED INFECTION
     Route: 048
  27. U-PASTA [Concomitant]
     Indication: PRODUCT USED FOR UNKNOWN INDICATION
     Route: 061
  28. ATARAX [Concomitant]
     Indication: PROPHYLAXIS
     Route: 042
  29. LIDOCAINE HYDROCHLORIDE [Concomitant]
     Indication: PROPHYLAXIS
     Route: 065
  30. SENNOSIDE [Concomitant]
     Indication: CONSTIPATION
     Route: 048
  31. GRANISETRON HYDROCHLORIDE [Concomitant]
     Route: 041
  32. DEXART [Concomitant]
     Route: 042
  33. DEXART [Concomitant]
     Route: 042
  34. GRAN [Concomitant]
     Route: 058
  35. AZULENE [Concomitant]
     Indication: LACRIMATION INCREASED
     Route: 031
  36. ENALAPRIL [Concomitant]
     Indication: HYPERTENSION
     Route: 048
  37. LECICARBON [Concomitant]
     Indication: CONSTIPATION
     Route: 054
  38. LOXONIN [Concomitant]
     Indication: PRODUCT USED FOR UNKNOWN INDICATION
     Route: 048
  39. MUCOSTA [Concomitant]
     Indication: PROPHYLAXIS
     Route: 048
  40. DEXART [Concomitant]
     Indication: PROPHYLAXIS
     Route: 042
  41. DEXART [Concomitant]
     Route: 042
  42. BARAMYCIN [Concomitant]
     Indication: DEVICE RELATED INFECTION
     Route: 061
  43. LOPEMIN [Concomitant]
     Indication: DIARRHOEA
     Route: 048

REACTIONS (2)
  - DEVICE RELATED INFECTION [None]
  - OVARIAN CANCER [None]
